FAERS Safety Report 6435352-4 (Version None)
Quarter: 2009Q4

REPORT INFORMATION
  Report Type: 
  Country: None (occurrence: None)
  Receive Date: 20091106
  Receipt Date: 20091026
  Transmission Date: 20100525
  Serious: Yes (Other)
  Sender: FDA-Public Use
  Company Number: AVE_00582_2009

PATIENT
  Sex: Female
  Weight: 85 kg

DRUGS (1)
  1. NICOTINE [Suspect]
     Indication: SMOKING CESSATION THERAPY
     Dosage: 21 MG QD, TRANSDERMAL
     Route: 062
     Dates: start: 20090602, end: 20090603

REACTIONS (6)
  - DRY MOUTH [None]
  - DYSPNOEA [None]
  - LIP SWELLING [None]
  - OROPHARYNGEAL BLISTERING [None]
  - STOMATITIS [None]
  - SWOLLEN TONGUE [None]
